FAERS Safety Report 7972092-4 (Version None)
Quarter: 2011Q4

REPORT INFORMATION
  Report Type: 
  Country: None (occurrence: None)
  Receive Date: 20111212
  Receipt Date: 20111129
  Transmission Date: 20120403
  Serious: Yes (Life-Threatening, Hospitalization, Other)
  Sender: FDA-Public Use
  Company Number: DE-CELGENEUS-062-50794-11114190

PATIENT
  Age: 75 Year
  Sex: Male
  Weight: 98.2 kg

DRUGS (2)
  1. VIDAZA [Suspect]
     Dosage: 75 MILLIGRAM/SQ. METER
     Route: 058
     Dates: start: 20110614, end: 20110718
  2. PREDNISOLONE [Concomitant]
     Dosage: 10 MILLIGRAM
     Route: 065

REACTIONS (7)
  - SUPRAVENTRICULAR TACHYCARDIA [None]
  - DYSPNOEA [None]
  - PNEUMONIA FUNGAL [None]
  - CARDIAC FAILURE [None]
  - PULMONARY EMBOLISM [None]
  - VENA CAVA THROMBOSIS [None]
  - LISTERIA SEPSIS [None]
